FAERS Safety Report 7291851-7 (Version None)
Quarter: 2011Q1

REPORT INFORMATION
  Report Type: 
  Country: None (occurrence: None)
  Receive Date: 20110214
  Receipt Date: 20110204
  Transmission Date: 20110831
  Serious: Yes (Death, Hospitalization)
  Sender: FDA-Public Use
  Company Number: FR-ROCHE-757931

PATIENT
  Age: 65 Year
  Sex: Male

DRUGS (1)
  1. ROACTEMRA [Suspect]
     Indication: RHEUMATOID ARTHRITIS
     Dosage: FREQUENCY : PER CYCLE FORM: INFUSION
     Route: 042
     Dates: start: 20101001, end: 20101101

REACTIONS (4)
  - EPSTEIN-BARR VIRUS INFECTION [None]
  - PLEURAL EFFUSION [None]
  - SUDDEN DEATH [None]
  - PNEUMONIA [None]
